FAERS Safety Report 4913768-2 (Version None)
Quarter: 2006Q1

REPORT INFORMATION
  Report Type: 
  Country: None (occurrence: None)
  Receive Date: 20060216
  Receipt Date: 20060214
  Transmission Date: 20060701
  Serious: Yes (Other)
  Sender: FDA-Public Use
  Company Number: US-GLAXOSMITHKLINE-A0593722A

PATIENT
  Age: 20 Year
  Sex: Male

DRUGS (3)
  1. ADVAIR DISKUS 100/50 [Suspect]
     Indication: BRONCHITIS
     Route: 055
     Dates: start: 20060101
  2. LEVAQUIN [Suspect]
     Indication: ACUTE SINUSITIS
     Route: 065
     Dates: start: 20060101
  3. MEDROL [Concomitant]

REACTIONS (3)
  - BLOOD CREATINE PHOSPHOKINASE INCREASED [None]
  - GRAND MAL CONVULSION [None]
  - SYNCOPE [None]
